FAERS Safety Report 14208472 (Version 2)
Quarter: 2017Q4

REPORT INFORMATION
  Report Type: Spontaneous
  Country: FR (occurrence: FR)
  Receive Date: 20171121
  Receipt Date: 20171129
  Transmission Date: 20180321
  Serious: Yes (Death, Life-Threatening, Hospitalization, Other)
  Sender: FDA-Public Use
  Company Number: FR-PFIZER INC-2017488204

PATIENT
  Age: 80 Year
  Sex: Female

DRUGS (8)
  1. FUROSEMIDE. [Suspect]
     Active Substance: FUROSEMIDE
     Indication: CARDIAC FAILURE
     Dosage: 20 MG, DAILY (1 GRINDED TABLET)
     Route: 042
     Dates: start: 20170911, end: 20170911
  2. PARACETAMOL [Suspect]
     Active Substance: ACETAMINOPHEN
     Indication: PAIN
     Dosage: 500 MG, DAILY (2 CAPSULES)
     Route: 040
     Dates: start: 20170911, end: 20170911
  3. DIGOXINE NATIVELLE [Suspect]
     Active Substance: DIGOXIN
     Indication: ARRHYTHMIA
     Dosage: 0.25 MG, DAILY (1 GRINDED TABLET)
     Route: 040
     Dates: start: 20170911, end: 20170911
  4. CORDARONE [Suspect]
     Active Substance: AMIODARONE HYDROCHLORIDE
     Indication: ARRHYTHMIA
     Dosage: 200 MG, DAILY (BREAKABLE TABLET, 1 GRINDED TABLET)
     Route: 040
     Dates: start: 20170911, end: 20170911
  5. PREDNISONE. [Suspect]
     Active Substance: PREDNISONE
     Indication: DERMATOMYOSITIS
     Dosage: 45 MG, DAILY
     Route: 040
     Dates: start: 20170911, end: 20170911
  6. LEVOTHYROX [Suspect]
     Active Substance: LEVOTHYROXINE
     Indication: HYPOTHYROIDISM
     Dosage: 175 UG, DAILY (1 GRINDED TABLET)
     Route: 040
     Dates: start: 20170911, end: 20170911
  7. CALCIDOSE [Suspect]
     Active Substance: CALCIUM CARBONATE
     Indication: OSTEOPOROSIS PROPHYLAXIS
     Dosage: 1 DF, DAILY (1 SACHET)
     Route: 040
     Dates: start: 20170911, end: 20170911
  8. ELIQUIS [Suspect]
     Active Substance: APIXABAN
     Indication: THROMBOSIS PROPHYLAXIS
     Dosage: 2.5 MG, DAILY
     Route: 040
     Dates: start: 20170911, end: 20170911

REACTIONS (2)
  - Cardio-respiratory arrest [Fatal]
  - Incorrect route of drug administration [Fatal]

NARRATIVE: CASE EVENT DATE: 20170911
